FAERS Safety Report 5744207-X (Version None)
Quarter: 2008Q2

REPORT INFORMATION
  Report Type: 
  Country: None (occurrence: None)
  Receive Date: 20080516
  Receipt Date: 20080516
  Transmission Date: 20081010
  Serious: No
  Sender: FDA-Public Use
  Company Number: None

PATIENT
  Age: 58 Year
  Sex: Female
  Weight: 74.8435 kg

DRUGS (2)
  1. CIPROFLOXACIN HCL [Suspect]
     Indication: DIVERTICULITIS
     Dosage: 500 MG 2 TIMES DAILY PO
     Route: 048
     Dates: start: 20080506, end: 20080509
  2. METRONIDAZOLE [Suspect]
     Indication: DIVERTICULITIS
     Dosage: 500 MG 4 TIMES DAILY PO
     Route: 048
     Dates: start: 20080506, end: 20080509

REACTIONS (4)
  - IMPAIRED WORK ABILITY [None]
  - NERVE COMPRESSION [None]
  - PAIN IN EXTREMITY [None]
  - SCIATICA [None]
